FAERS Safety Report 7379165-8 (Version None)
Quarter: 2011Q1

REPORT INFORMATION
  Report Type: 
  Country: None (occurrence: None)
  Receive Date: 20110328
  Receipt Date: 20110323
  Transmission Date: 20110831
  Serious: Yes (Death, Life-Threatening, Hospitalization, Other)
  Sender: FDA-Public Use
  Company Number: PHHY2010JP55504

PATIENT
  Sex: Female
  Weight: 44 kg

DRUGS (29)
  1. AFINITOR [Suspect]
     Dosage: 5 MG, DAILY
     Route: 048
     Dates: start: 20100427, end: 20100429
  2. INTERFERON ALFA [Concomitant]
     Indication: METASTATIC RENAL CELL CARCINOMA
     Dosage: 9000000 IU, UNK
     Route: 030
     Dates: start: 20070625, end: 20081029
  3. SUNITINIB MALATE [Concomitant]
     Indication: METASTATIC RENAL CELL CARCINOMA
     Dosage: 50 MG, UNK
     Route: 048
     Dates: start: 20090313
  4. THYRADIN S [Concomitant]
     Dosage: 75 MG, UNK
     Route: 048
  5. BROCIN-CODEINE [Concomitant]
     Dosage: 6 ML, UNK
     Route: 048
     Dates: start: 20100201
  6. AFINITOR [Suspect]
     Dosage: 5 MG, DAILY
     Route: 048
     Dates: start: 20100728, end: 20100924
  7. SUNITINIB MALATE [Concomitant]
     Dosage: 37.5 MG, UNK
     Route: 048
     Dates: end: 20100307
  8. MAGMITT [Concomitant]
     Dosage: 6 DF, UNK
     Route: 048
     Dates: end: 20101105
  9. PARIET [Concomitant]
     Dosage: 20 MG, DAILY
     Route: 048
  10. MAGMITT [Concomitant]
     Dosage: 9 DF, UNK
     Route: 048
     Dates: start: 20070706
  11. BIOFERMIN [Concomitant]
     Dosage: 3 G, UNK
     Route: 048
     Dates: start: 20091113, end: 20100528
  12. ZOMETA [Concomitant]
     Indication: METASTATIC RENAL CELL CARCINOMA
     Route: 041
     Dates: start: 20100409, end: 20100616
  13. INTERFERON ALFA [Concomitant]
     Dosage: 6000000 IU, UNK
     Route: 030
     Dates: end: 20081029
  14. GASTER D [Concomitant]
     Dosage: 20 MG, UNK
     Route: 048
     Dates: start: 20100121, end: 20100517
  15. PARIET [Concomitant]
     Dosage: 10 MG, DAILY
     Route: 048
  16. PARIET [Concomitant]
     Dosage: 20 MG, UNK
     Route: 048
     Dates: end: 20101105
  17. AFINITOR [Suspect]
     Indication: METASTATIC RENAL CELL CARCINOMA
     Dosage: 10 MG, DAILY
     Route: 048
     Dates: start: 20100323, end: 20100426
  18. AFINITOR [Suspect]
     Dosage: 5 MG, DAILY
     Route: 048
     Dates: start: 20100514, end: 20100519
  19. SORAFENIB TOSILATE [Concomitant]
     Dosage: 800 MG, UNK
     Route: 048
     Dates: end: 20090224
  20. NOVAMIN [Concomitant]
     Dosage: 15 MG, UNK
     Route: 048
     Dates: start: 20100720, end: 20100802
  21. SORAFENIB TOSILATE [Concomitant]
     Indication: METASTATIC RENAL CELL CARCINOMA
     Dosage: 800 MG, UNK
     Route: 048
     Dates: start: 20070625
  22. SORAFENIB TOSILATE [Concomitant]
     Dosage: 400 MG, UNK
     Route: 048
  23. THYRADIN S [Concomitant]
     Dosage: 100 MG, UNK
     Route: 048
     Dates: start: 20091225
  24. ALOSENN [Concomitant]
     Dosage: 0.5 G, UNK
     Route: 048
     Dates: start: 20090911
  25. BROCIN-CODEINE [Concomitant]
     Dosage: 2 ML, UNK
     Route: 048
     Dates: end: 20100730
  26. AFINITOR [Suspect]
     Dosage: 5 MG, DAILY
     Route: 048
     Dates: start: 20100616, end: 20100714
  27. THYRADIN S [Concomitant]
     Dosage: 100 MG, UNK
     Route: 048
     Dates: end: 20101105
  28. ALOSENN [Concomitant]
     Dosage: 1.5 G, UNK
     Route: 048
     Dates: end: 20100914
  29. RED CELLS MAP [Concomitant]
     Dosage: UNK

REACTIONS (13)
  - HYPOXIA [None]
  - BACK PAIN [None]
  - ANAEMIA [None]
  - RENAL IMPAIRMENT [None]
  - PNEUMONIA ASPIRATION [None]
  - MUSCULOSKELETAL PAIN [None]
  - PLEURAL EFFUSION [None]
  - FATIGUE [None]
  - PNEUMONIA BACTERIAL [None]
  - NAUSEA [None]
  - NEOPLASM MALIGNANT [None]
  - ILEUS [None]
  - INSOMNIA [None]
